FAERS Safety Report 19589953 (Version 2)
Quarter: 2021Q3

REPORT INFORMATION
  Report Type: Spontaneous
  Country: US (occurrence: US)
  Receive Date: 20210721
  Receipt Date: 20210924
  Transmission Date: 20211014
  Serious: Yes (Other)
  Sender: FDA-Public Use
  Company Number: US-JNJFOC-20210734412

PATIENT
  Age: 57 Year
  Sex: Male

DRUGS (2)
  1. DARATUMUMAB [Suspect]
     Active Substance: DARATUMUMAB
     Indication: PLASMA CELL MYELOMA
     Route: 042
  2. DARZALEX FASPRO [Suspect]
     Active Substance: DARATUMUMAB\HYALURONIDASE-FIHJ
     Indication: PLASMA CELL MYELOMA
     Route: 065

REACTIONS (6)
  - Cough [Unknown]
  - Injection site erythema [Unknown]
  - Red blood cell count decreased [Not Recovered/Not Resolved]
  - Wheezing [Unknown]
  - Infusion related reaction [Unknown]
  - Respiratory tract infection [Unknown]
